FAERS Safety Report 8501052 (Version 36)
Quarter: 2014Q4

REPORT INFORMATION
  Report Type: Report from Study
  Country: NZ (occurrence: NZ)
  Receive Date: 20120410
  Receipt Date: 20141215
  Transmission Date: 20150529
  Serious: Yes (Death, Life-Threatening, Hospitalization, Other)
  Sender: FDA-Public Use
  Company Number: PHHY2011NZ105313

PATIENT
  Age: 35 Year
  Sex: Male

DRUGS (7)
  1. QUETIAPINE [Concomitant]
     Active Substance: QUETIAPINE
     Indication: SCHIZOPHRENIA
     Dosage: 400 MG, QD
     Route: 048
     Dates: start: 20100824
  2. CLOZARIL [Suspect]
     Active Substance: CLOZAPINE
     Indication: SCHIZOPHRENIA
     Dosage: 550 MG, QD
     Route: 048
     Dates: start: 20100105
  3. LACTULOSE. [Concomitant]
     Active Substance: LACTULOSE
     Indication: PRODUCT USED FOR UNKNOWN INDICATION
     Dosage: 10 ML, QD
     Route: 048
     Dates: start: 20100629
  4. BISACODYL. [Concomitant]
     Active Substance: BISACODYL
     Indication: PRODUCT USED FOR UNKNOWN INDICATION
     Dosage: 5 MG, QD
     Route: 048
     Dates: start: 20100603
  5. MOVICOL [Concomitant]
     Active Substance: POLYETHYLENE GLYCOL 3350\POTASSIUM CHLORIDE\SODIUM BICARBONATE\SODIUM CHLORIDE
     Indication: CONSTIPATION
     Dosage: 1 DF, PRN
     Route: 048
     Dates: start: 20100422
  6. CLOZARIL [Suspect]
     Active Substance: CLOZAPINE
     Dosage: UNK
     Route: 048
     Dates: start: 20121024
  7. LANSOPRAZOLE. [Concomitant]
     Active Substance: LANSOPRAZOLE
     Indication: DYSPEPSIA
     Dosage: 30 MG, UNK
     Route: 048
     Dates: start: 20130415

REACTIONS (20)
  - Testicular cancer metastatic [Fatal]
  - Testicular germ cell cancer [Unknown]
  - Lymphadenopathy [Fatal]
  - Back pain [Fatal]
  - Metastases to liver [Fatal]
  - Neutrophil count decreased [Recovered/Resolved]
  - Vomiting [Recovered/Resolved]
  - White blood cell count increased [Recovered/Resolved]
  - Neutrophil count increased [Recovered/Resolved]
  - Metastases to lung [Fatal]
  - Metastases to bone [Fatal]
  - Testicular seminoma (pure) [Unknown]
  - Malaise [Unknown]
  - Salivary hypersecretion [Unknown]
  - Nausea [Recovered/Resolved]
  - Metastases to lymph nodes [Fatal]
  - Terminal state [Unknown]
  - Leukopenia [Recovered/Resolved]
  - Fatigue [Recovered/Resolved]
  - Anaemia [Unknown]

NARRATIVE: CASE EVENT DATE: 201106
